FAERS Safety Report 8501300-6 (Version None)
Quarter: 2012Q3

REPORT INFORMATION
  Report Type: 
  Country: None (occurrence: None)
  Receive Date: 20120710
  Receipt Date: 20120705
  Transmission Date: 20120928
  Serious: No
  Sender: FDA-Public Use
  Company Number: US-PFIZER INC-2010US-36377

PATIENT
  Sex: Male
  Weight: 125 kg

DRUGS (5)
  1. TRAZODONE HYDROCHLORIDE [Suspect]
     Indication: DEPRESSION
     Dosage: UNK, QD
     Route: 048
     Dates: start: 19980101
  2. VIAGRA [Suspect]
     Indication: ERECTILE DYSFUNCTION
     Dosage: 50 MG, PRN
     Route: 048
     Dates: start: 19980101
  3. CALAN SR [Suspect]
     Indication: HYPERTENSION
     Dosage: 240 MG, BID
     Route: 048
  4. CARDURA [Suspect]
     Dosage: 4 MG, QD
     Route: 048
  5. CARDURA [Suspect]
     Dosage: 1 MG, QD
     Route: 048

REACTIONS (1)
  - ERECTILE DYSFUNCTION [None]
